FAERS Safety Report 15691057 (Version 1)
Quarter: 2018Q4

REPORT INFORMATION
  Report Type: Spontaneous
  Country: HU (occurrence: HU)
  Receive Date: 20181205
  Receipt Date: 20181205
  Transmission Date: 20190205
  Serious: Yes (Other)
  Sender: FDA-Public Use
  Company Number: PHHY2018HU173037

PATIENT
  Age: 60 Year
  Sex: Female

DRUGS (2)
  1. METHOTREXATE. [Suspect]
     Active Substance: METHOTREXATE
     Indication: RAYNAUD^S PHENOMENON
     Dosage: UNK
     Route: 065
  2. CYCLOPHOSPHAMIDE. [Suspect]
     Active Substance: CYCLOPHOSPHAMIDE
     Indication: RAYNAUD^S PHENOMENON
     Dosage: (TOTAL DOSE OF 6000 MG)
     Route: 065

REACTIONS (6)
  - Raynaud^s phenomenon [Unknown]
  - Demyelination [Unknown]
  - Gait disturbance [Unknown]
  - Muscle spasticity [Unknown]
  - Product use in unapproved indication [Unknown]
  - Disease progression [Unknown]
